FAERS Safety Report 5254112-3 (Version None)
Quarter: 2007Q1

REPORT INFORMATION
  Report Type: 
  Country: None (occurrence: None)
  Receive Date: 20070302
  Receipt Date: 20070228
  Transmission Date: 20070707
  Serious: Yes (Hospitalization)
  Sender: FDA-Public Use
  Company Number: 2007UW03902

PATIENT
  Age: 47 Year
  Sex: Female
  Weight: 122.5 kg

DRUGS (3)
  1. NEXIUM [Suspect]
     Indication: GASTROOESOPHAGEAL REFLUX DISEASE
     Route: 048
     Dates: start: 20060901
  2. SYNTHROID [Concomitant]
  3. TYLENOL [Concomitant]

REACTIONS (5)
  - DEHYDRATION [None]
  - NAUSEA [None]
  - RENAL FAILURE ACUTE [None]
  - RENAL TUBULAR NECROSIS [None]
  - VOMITING [None]
